FAERS Safety Report 5911909-1 (Version None)
Quarter: 2008Q4

REPORT INFORMATION
  Report Type: 
  Country: None (occurrence: None)
  Receive Date: 20081008
  Receipt Date: 20080929
  Transmission Date: 20090506
  Serious: Yes (Other)
  Sender: FDA-Public Use
  Company Number: PHHY2008BR23110

PATIENT
  Age: 49 Year
  Sex: Male
  Weight: 97 kg

DRUGS (4)
  1. SLOW-K [Suspect]
     Indication: MUSCLE SPASMS
     Dosage: 1 TABLET DAILY
     Route: 048
  2. SYMBICORT TURBUHALER ^DRACO^ [Concomitant]
     Indication: BRONCHITIS
     Dosage: 12/400 MCG TWICE DAILY
     Route: 048
  3. CLORANA [Concomitant]
     Indication: HYPERTENSION
     Dosage: 1 TABLET IN THE MORNING
     Route: 048
  4. CAPTOPRIL [Concomitant]
     Indication: HYPERTENSION
     Dosage: 1 TABLET IN MORNING
     Route: 048

REACTIONS (2)
  - MUSCLE SPASMS [None]
  - PHARYNGEAL HAEMORRHAGE [None]
